FAERS Safety Report 17477137 (Version 1)
Quarter: 2020Q1

REPORT INFORMATION
  Report Type: Report from Study
  Country: GB (occurrence: GB)
  Receive Date: 20200228
  Receipt Date: 20200228
  Transmission Date: 20200409
  Serious: Yes (Hospitalization)
  Sender: FDA-Public Use
  Company Number: GB-JNJFOC-20191129954

PATIENT
  Age: 55 Year
  Sex: Female
  Weight: 107 kg

DRUGS (12)
  1. PARACETAMOL [Concomitant]
     Active Substance: ACETAMINOPHEN
     Route: 065
     Dates: start: 20160524
  2. MST                                /00021210/ [Concomitant]
     Active Substance: MAGNESIUM SALICYLATE
     Route: 065
     Dates: start: 20160524
  3. FLUCLOXACILLIN [Concomitant]
     Active Substance: FLUCLOXACILLIN
     Route: 065
     Dates: start: 20191114
  4. QUETIAPINE. [Concomitant]
     Active Substance: QUETIAPINE
     Route: 065
     Dates: start: 20121010
  5. ORAMORPH [Concomitant]
     Active Substance: MORPHINE SULFATE
     Route: 065
     Dates: start: 20160524, end: 20180715
  6. FLUCLOXACILLIN [Concomitant]
     Active Substance: FLUCLOXACILLIN
     Route: 065
     Dates: start: 20191018, end: 20191025
  7. NAPROXEN. [Concomitant]
     Active Substance: NAPROXEN
     Route: 065
     Dates: start: 20120619
  8. OMEPRAZOLE. [Concomitant]
     Active Substance: OMEPRAZOLE
     Route: 065
     Dates: start: 20130628
  9. SIMVASTATIN. [Concomitant]
     Active Substance: SIMVASTATIN
     Route: 065
     Dates: start: 20120213
  10. STELARA [Suspect]
     Active Substance: USTEKINUMAB
     Indication: PSORIASIS
     Route: 058
     Dates: start: 20151024, end: 20190620
  11. AMITRIPTYLINE [Concomitant]
     Active Substance: AMITRIPTYLINE
     Route: 065
     Dates: start: 20090615
  12. VENLAFAXINE [Concomitant]
     Active Substance: VENLAFAXINE HYDROCHLORIDE
     Route: 065
     Dates: start: 20110627

REACTIONS (1)
  - Gastroenteritis Escherichia coli [Recovered/Resolved]

NARRATIVE: CASE EVENT DATE: 20190901
